FAERS Safety Report 16539144 (Version 1)
Quarter: 2019Q3

REPORT INFORMATION
  Report Type: Spontaneous
  Country: US (occurrence: US)
  Receive Date: 20190708
  Receipt Date: 20190708
  Transmission Date: 20191004
  Serious: No
  Sender: FDA-Public Use
  Company Number: US-TEVA-2019-US-1067958

PATIENT
  Sex: Female

DRUGS (2)
  1. BUPRENORPHINE. [Suspect]
     Active Substance: BUPRENORPHINE
     Indication: SYSTEMIC LUPUS ERYTHEMATOSUS
  2. BUPRENORPHINE. [Suspect]
     Active Substance: BUPRENORPHINE
     Indication: FIBROMYALGIA
     Route: 062

REACTIONS (4)
  - Drug ineffective [Unknown]
  - Tremor [Unknown]
  - Malaise [Unknown]
  - Impaired work ability [Unknown]
